FAERS Safety Report 5139643-9 (Version None)
Quarter: 2006Q4

REPORT INFORMATION
  Report Type: 
  Country: None (occurrence: None)
  Receive Date: 20061023
  Receipt Date: 20061009
  Transmission Date: 20070319
  Serious: Yes (Death)
  Sender: FDA-Public Use
  Company Number: IN200610001678

PATIENT
  Age: 73 Year
  Sex: Female

DRUGS (3)
  1. FORTEO [Suspect]
     Indication: OSTEOPOROSIS
     Dosage: 20 MCG, DAILY (1/D), SUBCUTANEOUS
     Route: 058
     Dates: start: 20060811
  2. FORTEO PEN                                (FORTEO PEN) PEN, DISPOSABLE [Concomitant]
  3. .. [Concomitant]

REACTIONS (1)
  - DEATH [None]
